FAERS Safety Report 8756656 (Version 2)
Quarter: 2013Q1

REPORT INFORMATION
  Report Type: Spontaneous
  Country: US (occurrence: None)
  Receive Date: 20120814
  Receipt Date: 20121108
  Transmission Date: 20140127
  Serious: Yes (Disabling, Other)
  Sender: FDA-Public Use
  Company Number: 2012MA009935

PATIENT
  Sex: Male
  Weight: 88 kg

DRUGS (12)
  1. METOCLOPRAMIDE [Suspect]
     Indication: IMPAIRED GASTRIC EMPTYING
     Dates: start: 20060201, end: 20061201
  2. NEXIUM [Concomitant]
  3. LIPITOR [Concomitant]
  4. CELEBREX [Concomitant]
  5. LORAZEPAM [Concomitant]
  6. CYCLOBENZAPRINE [Concomitant]
  7. NIASPAN [Concomitant]
  8. DICLOFENAC [Concomitant]
  9. HYDROCODONE [Concomitant]
  10. GABAPENTIN [Concomitant]
  11. VITAMIN D [Concomitant]
  12. OMEPRAZOLE [Concomitant]

REACTIONS (13)
  - Incorrect drug administration duration [None]
  - Multiple injuries [None]
  - Nervous system disorder [None]
  - Extrapyramidal disorder [None]
  - Tardive dyskinesia [None]
  - Pain [None]
  - Anxiety [None]
  - General physical condition abnormal [None]
  - Anhedonia [None]
  - Activities of daily living impaired [None]
  - Economic problem [None]
  - Toxicity to various agents [None]
  - Loss of employment [None]
